FAERS Safety Report 10055709 (Version 3)
Quarter: 2014Q2

REPORT INFORMATION
  Report Type: Spontaneous
  Country: FR (occurrence: FR)
  Receive Date: 20140403
  Receipt Date: 20140523
  Transmission Date: 20141212
  Serious: Yes (Other)
  Sender: FDA-Public Use
  Company Number: FR-ASTRAZENECA-2014SE20896

PATIENT
  Age: 17253 Day
  Sex: Female
  Weight: 63 kg

DRUGS (7)
  1. XEROQUEL [Suspect]
     Indication: MAJOR DEPRESSION
     Route: 048
     Dates: start: 20140306, end: 20140306
  2. XEROQUEL [Suspect]
     Indication: MAJOR DEPRESSION
     Route: 048
     Dates: start: 20140307, end: 20140307
  3. XEROQUEL [Suspect]
     Indication: MAJOR DEPRESSION
     Route: 048
     Dates: start: 20140308, end: 20140315
  4. FLUOXETINE [Concomitant]
     Indication: MAJOR DEPRESSION
     Route: 048
     Dates: start: 20140212, end: 20140318
  5. EFFEXOR [Concomitant]
  6. ZOLPICLONE [Concomitant]
     Indication: SLEEP DISORDER
     Route: 048
     Dates: start: 20131107, end: 20140318
  7. PRAZEPAM [Concomitant]
     Indication: ANXIETY
     Dosage: 20 MG, IF NEEDED
     Route: 048
     Dates: start: 20140212

REACTIONS (3)
  - Non-obstructive cardiomyopathy [Recovering/Resolving]
  - Ventricular extrasystoles [Recovering/Resolving]
  - Electrocardiogram QT prolonged [Unknown]
